FAERS Safety Report 19080686 (Version 2)
Quarter: 2021Q2

REPORT INFORMATION
  Report Type: Spontaneous
  Country: JP (occurrence: JP)
  Receive Date: 20210331
  Receipt Date: 20210422
  Transmission Date: 20210717
  Serious: Yes (Hospitalization, Disabling, Other)
  Sender: FDA-Public Use
  Company Number: JP-AMGEN-JPNSP2021039549

PATIENT
  Age: 84 Year
  Sex: Female
  Weight: 36 kg

DRUGS (5)
  1. MUCOSTA [Concomitant]
     Active Substance: REBAMIPIDE
     Indication: SPINAL OSTEOARTHRITIS
     Dosage: 100 MILLIGRAMC(1 TABLET AS NEEDED)
     Dates: start: 20191016
  2. EVENITY [Suspect]
     Active Substance: ROMOSOZUMAB-AQQG
     Indication: OSTEOPOROSIS
     Dosage: 210 MILLIGRAM, QMO (1.17ML 2 CYLINDERS EACH TIME)
     Route: 058
     Dates: start: 20190626, end: 20191113
  3. EVENITY [Suspect]
     Active Substance: ROMOSOZUMAB-AQQG
     Indication: PATHOLOGICAL FRACTURE
  4. EVENITY [Suspect]
     Active Substance: ROMOSOZUMAB-AQQG
     Indication: BONE DENSITY DECREASED
  5. LOXONIN [Concomitant]
     Active Substance: LOXOPROFEN SODIUM
     Indication: SPINAL OSTEOARTHRITIS
     Dosage: 60 MILLIGRAM, 1 TABLET AS NEEDED
     Dates: start: 20191016

REACTIONS (1)
  - Embolic cerebral infarction [Unknown]

NARRATIVE: CASE EVENT DATE: 20191129
